FAERS Safety Report 9026497 (Version 1)
Quarter: 2013Q1

REPORT INFORMATION
  Report Type: Spontaneous
  Country: GB (occurrence: None)
  Receive Date: 20130109
  Receipt Date: 20130109
  Transmission Date: 20140127
  Serious: Yes (Death)
  Sender: FDA-Public Use
  Company Number: 2012-23360

PATIENT
  Age: 29 Year
  Sex: Male
  Weight: 66 kg

DRUGS (11)
  1. DIAZEPAM [Suspect]
     Indication: SEDATIVE THERAPY
  2. ZOMORPH [Suspect]
     Dates: start: 20090420
  3. PHENAZEPAM [Suspect]
  4. DIHYDROCODEINE [Suspect]
  5. GABAPENTIN GABAPENTIN [Concomitant]
  6. AMITRIPTYLINE (AMITRIPTYLINE) [Concomitant]
  7. PROPRANOLOL (PROPRANOLOL) [Concomitant]
  8. CITALOPRAM (CITALOPRAM) [Concomitant]
  9. CHLORPHENIRAMINE  /00072501/ (CHLORPHENAMINE) [Concomitant]
  10. FERROUS SULPHATE  /00023503/ (FERROUS SULFATE) [Concomitant]
  11. PARACETAMOL (PARACETAMOL) [Concomitant]

REACTIONS (4)
  - Toxicity to various agents [None]
  - Drug interaction [None]
  - Overdose [None]
  - Circulatory collapse [None]
